FAERS Safety Report 7015358-7 (Version None)
Quarter: 2010Q3

REPORT INFORMATION
  Report Type: 
  Country: None (occurrence: None)
  Receive Date: 20100924
  Receipt Date: 20100924
  Transmission Date: 20110219
  Serious: Yes (Hospitalization)
  Sender: FDA-Public Use
  Company Number: None

PATIENT
  Age: 88 Year
  Sex: Female

DRUGS (1)
  1. CITALOPRAM HYDROBROMIDE [Suspect]
     Indication: TREMOR
     Dosage: 20 MG DAILY PO
     Route: 048

REACTIONS (3)
  - ABASIA [None]
  - CONDITION AGGRAVATED [None]
  - TREMOR [None]
